FAERS Safety Report 24426047 (Version 1)
Quarter: 2024Q4

REPORT INFORMATION
  Report Type: Spontaneous
  Country: FR (occurrence: FR)
  Receive Date: 20241011
  Receipt Date: 20241011
  Transmission Date: 20250114
  Serious: Yes (Other)
  Sender: ACCORD
  Company Number: None

PATIENT
  Age: 54 Year
  Sex: Female

DRUGS (2)
  1. DOCETAXEL [Suspect]
     Active Substance: DOCETAXEL
     Indication: Breast cancer
     Dates: start: 20240806, end: 20240806
  2. TRASTUZUMAB [Suspect]
     Active Substance: TRASTUZUMAB
     Indication: Breast cancer
     Dates: start: 20240807, end: 20240807

REACTIONS (3)
  - Recall phenomenon [Recovering/Resolving]
  - Mucosal inflammation [Recovering/Resolving]
  - Anal inflammation [Recovering/Resolving]

NARRATIVE: CASE EVENT DATE: 20240801
